FAERS Safety Report 24060079 (Version 1)
Quarter: 2024Q3

REPORT INFORMATION
  Report Type: Report from Study
  Country: FR (occurrence: FR)
  Receive Date: 20240708
  Receipt Date: 20240708
  Transmission Date: 20241016
  Serious: Yes (Other)
  Sender: TAKEDA
  Company Number: FR-TAKEDA-2024TUS066440

PATIENT
  Sex: Female

DRUGS (1)
  1. BRIGATINIB [Suspect]
     Active Substance: BRIGATINIB
     Indication: Non-small cell lung cancer
     Dosage: 180 MILLIGRAM/HOUR
     Route: 048
     Dates: start: 20220326, end: 20240509

REACTIONS (12)
  - Non-small cell lung cancer [Unknown]
  - Facial paralysis [Unknown]
  - Central nervous system lesion [Unknown]
  - Skin laceration [Unknown]
  - Dysarthria [Unknown]
  - Mood swings [Unknown]
  - Nausea [Unknown]
  - Memory impairment [Unknown]
  - Dysgeusia [Unknown]
  - Fatigue [Unknown]
  - Pain [Unknown]
  - Drug ineffective [Unknown]
